FAERS Safety Report 11976466 (Version 1)
Quarter: 2016Q1

REPORT INFORMATION
  Report Type: Spontaneous
  Country: US (occurrence: None)
  Receive Date: 20160128
  Receipt Date: 20160128
  Transmission Date: 20160526
  Serious: No
  Sender: FDA-Public Use
  Company Number: None

PATIENT
  Age: 47 Year
  Sex: Male
  Weight: 100.6 kg

DRUGS (1)
  1. ADALIMUMAB [Suspect]
     Active Substance: ADALIMUMAB
     Dosage: OTHER
     Route: 058
     Dates: start: 20150513, end: 20151103

REACTIONS (1)
  - Hepatic enzyme abnormal [None]

NARRATIVE: CASE EVENT DATE: 20151103
